FAERS Safety Report 7475485-7 (Version None)
Quarter: 2011Q2

REPORT INFORMATION
  Report Type: 
  Country: None (occurrence: None)
  Receive Date: 20110512
  Receipt Date: 20110428
  Transmission Date: 20111010
  Serious: Yes (Other)
  Sender: FDA-Public Use
  Company Number: PHHY2011NL37253

PATIENT
  Sex: Male

DRUGS (3)
  1. ZOMETA [Suspect]
     Dosage: 4 MG, UNK
     Dates: start: 20110428
  2. ZOMETA [Suspect]
     Indication: METASTATIC RENAL CELL CARCINOMA
     Dosage: 4 MG, UNK
     Dates: start: 20110303
  3. ZOMETA [Suspect]
     Dosage: 4 MG, UNK
     Dates: start: 20110331

REACTIONS (3)
  - BONE SWELLING [None]
  - PAIN [None]
  - NEOPLASM [None]
